FAERS Safety Report 20240047 (Version 8)
Quarter: 2022Q2

REPORT INFORMATION
  Report Type: Spontaneous
  Country: CA (occurrence: CA)
  Receive Date: 20211228
  Receipt Date: 20220505
  Transmission Date: 20220721
  Serious: Yes (Death, Other)
  Sender: FDA-Public Use
  Company Number: None

PATIENT
  Age: 80 Year
  Sex: Male
  Weight: 69 kg

DRUGS (316)
  1. ALLOPURINOL [Suspect]
     Active Substance: ALLOPURINOL
     Indication: Blood uric acid increased
     Dosage: 100 MG, QD
     Route: 048
  2. ALLOPURINOL [Suspect]
     Active Substance: ALLOPURINOL
     Dosage: 1 DOSAGE FORM, QD
     Route: 048
  3. ALLOPURINOL [Suspect]
     Active Substance: ALLOPURINOL
     Dosage: 100 MG, QD
     Route: 048
  4. ALLOPURINOL [Suspect]
     Active Substance: ALLOPURINOL
     Dosage: 100 MG, QD
     Route: 048
  5. ALLOPURINOL [Suspect]
     Active Substance: ALLOPURINOL
     Dosage: 1 DOSAGE FORM, QD
     Route: 048
  6. AMIODARONE HYDROCHLORIDE [Suspect]
     Active Substance: AMIODARONE HYDROCHLORIDE
     Indication: Ventricular fibrillation
     Dosage: 150 MG, QD
     Route: 042
  7. AMIODARONE HYDROCHLORIDE [Suspect]
     Active Substance: AMIODARONE HYDROCHLORIDE
     Indication: Drug therapy
     Dosage: 150 MG, QD
     Route: 042
  8. AMIODARONE HYDROCHLORIDE [Suspect]
     Active Substance: AMIODARONE HYDROCHLORIDE
     Indication: Off label use
     Dosage: UNK UNK, QD
     Route: 065
  9. AMIODARONE HYDROCHLORIDE [Suspect]
     Active Substance: AMIODARONE HYDROCHLORIDE
     Dosage: UNK UNK, QD
     Route: 065
  10. AMIODARONE HYDROCHLORIDE [Suspect]
     Active Substance: AMIODARONE HYDROCHLORIDE
     Dosage: 150 MG, QD
     Route: 042
  11. AMIODARONE HYDROCHLORIDE [Suspect]
     Active Substance: AMIODARONE HYDROCHLORIDE
     Dosage: 150 MG, QD
     Route: 042
  12. AMIODARONE HYDROCHLORIDE [Suspect]
     Active Substance: AMIODARONE HYDROCHLORIDE
     Dosage: 150 MG, QD
     Route: 042
  13. AMIODARONE HYDROCHLORIDE [Suspect]
     Active Substance: AMIODARONE HYDROCHLORIDE
     Dosage: 150 MG, QD
     Route: 042
  14. AMIODARONE HYDROCHLORIDE [Suspect]
     Active Substance: AMIODARONE HYDROCHLORIDE
     Dosage: UNK UNK, QD
     Route: 065
  15. AMIODARONE [Suspect]
     Active Substance: AMIODARONE
     Indication: Ventricular fibrillation
     Dosage: 150 MG, QD
     Route: 042
  16. AMIODARONE [Suspect]
     Active Substance: AMIODARONE
     Indication: Drug therapy
     Dosage: 150 MG, QD
     Route: 042
  17. AMIODARONE [Suspect]
     Active Substance: AMIODARONE
     Indication: Intentional product misuse
     Dosage: 150 MG, QD
     Route: 042
  18. AMIODARONE [Suspect]
     Active Substance: AMIODARONE
     Indication: Off label use
     Dosage: 150 MG, QD
     Route: 042
  19. AMIODARONE [Suspect]
     Active Substance: AMIODARONE
     Dosage: 150 MG, QD
     Route: 042
  20. AMIODARONE [Suspect]
     Active Substance: AMIODARONE
     Dosage: 150 MG, QD
     Route: 042
  21. AMIODARONE [Suspect]
     Active Substance: AMIODARONE
     Dosage: 150 MG, QD
     Route: 042
  22. AMIODARONE [Suspect]
     Active Substance: AMIODARONE
     Dosage: 150 MG, QD
     Route: 042
  23. AMIODARONE [Suspect]
     Active Substance: AMIODARONE
     Dosage: 150 MG, QD
     Route: 042
  24. AMIODARONE [Suspect]
     Active Substance: AMIODARONE
     Dosage: 150 MG, QD
     Route: 042
  25. AMIODARONE [Suspect]
     Active Substance: AMIODARONE
     Dosage: 150 MG, QD
     Route: 042
  26. AMIODARONE [Suspect]
     Active Substance: AMIODARONE
     Dosage: 150 MG, QD
     Route: 042
  27. CEFTRIAXONE SODIUM [Suspect]
     Active Substance: CEFTRIAXONE SODIUM
     Indication: Bacterial infection
     Dosage: 2 G, QD
     Route: 042
  28. CEFTRIAXONE SODIUM [Suspect]
     Active Substance: CEFTRIAXONE SODIUM
     Dosage: 2 G, QD
     Route: 042
  29. CEFTRIAXONE SODIUM [Suspect]
     Active Substance: CEFTRIAXONE SODIUM
     Dosage: 2 G, QD
     Route: 042
  30. CEFTRIAXONE SODIUM [Suspect]
     Active Substance: CEFTRIAXONE SODIUM
     Dosage: 2 G, QD
     Route: 042
  31. CEFTRIAXONE SODIUM [Suspect]
     Active Substance: CEFTRIAXONE SODIUM
     Dosage: 2 G, QD
     Route: 042
  32. CEFTRIAXONE SODIUM [Suspect]
     Active Substance: CEFTRIAXONE SODIUM
     Dosage: 2 G, QD
     Route: 042
  33. DOBUTAMINE [Suspect]
     Active Substance: DOBUTAMINE HYDROCHLORIDE
     Indication: Cardiogenic shock
     Dosage: UNK
     Route: 065
  34. DOBUTAMINE [Suspect]
     Active Substance: DOBUTAMINE HYDROCHLORIDE
     Dosage: UNK
     Route: 042
  35. DOBUTAMINE [Suspect]
     Active Substance: DOBUTAMINE HYDROCHLORIDE
     Dosage: UNK
     Route: 042
  36. DOBUTAMINE [Suspect]
     Active Substance: DOBUTAMINE HYDROCHLORIDE
     Dosage: UNK
     Route: 065
  37. ONDANSETRON [Suspect]
     Active Substance: ONDANSETRON
     Indication: Vomiting
     Dosage: 41.14 MG
     Route: 042
  38. ONDANSETRON [Suspect]
     Active Substance: ONDANSETRON
     Indication: Nausea
     Dosage: 12 MG, Q8H
     Route: 042
  39. ONDANSETRON [Suspect]
     Active Substance: ONDANSETRON
     Dosage: 36 MG, Q8H
     Route: 042
  40. ONDANSETRON [Suspect]
     Active Substance: ONDANSETRON
     Dosage: 36 MG, Q8H
     Route: 042
  41. ONDANSETRON [Suspect]
     Active Substance: ONDANSETRON
     Dosage: 41.14 MG
     Route: 042
  42. ONDANSETRON [Suspect]
     Active Substance: ONDANSETRON
     Dosage: 40.0 MG, Q8H
     Route: 042
  43. ONDANSETRON [Suspect]
     Active Substance: ONDANSETRON
     Dosage: 4.0 MG, QD
     Route: 042
  44. ONDANSETRON [Suspect]
     Active Substance: ONDANSETRON
     Dosage: 4.0 MG, QD
     Route: 042
  45. ONDANSETRON [Suspect]
     Active Substance: ONDANSETRON
     Dosage: 12 MG, Q8H
     Route: 042
  46. ONDANSETRON [Suspect]
     Active Substance: ONDANSETRON
     Dosage: 1 DOSAGE FORM
     Route: 042
  47. ONDANSETRON [Suspect]
     Active Substance: ONDANSETRON
     Dosage: 40.0 MG, Q8H
     Route: 042
  48. ONDANSETRON [Suspect]
     Active Substance: ONDANSETRON
     Dosage: 120.0 DOSAGE FORM
     Route: 042
  49. VASOPRESSIN [Suspect]
     Active Substance: VASOPRESSIN
     Indication: Drug therapy
     Dosage: 50 ML, QD
     Route: 042
  50. VASOPRESSIN [Suspect]
     Active Substance: VASOPRESSIN
     Dosage: 250 ML, QD
     Route: 042
  51. VITAMIN C [Suspect]
     Active Substance: ASCORBIC ACID
     Indication: Constipation
     Dosage: 170.0 G, QD
     Route: 048
  52. NOREPINEPHRINE BITARTRATE [Suspect]
     Active Substance: NOREPINEPHRINE BITARTRATE
     Indication: Stress
     Dosage: 3 MG, QD
     Route: 048
  53. POTASSIUM CHLORIDE [Suspect]
     Active Substance: POTASSIUM CHLORIDE
     Indication: Product used for unknown indication
     Dosage: 17.0 G, QD
     Route: 048
  54. HEPARIN SODIUM [Suspect]
     Active Substance: HEPARIN SODIUM
     Indication: Anticoagulant therapy
     Dosage: 250 ML
     Route: 042
  55. HEPARIN SODIUM [Suspect]
     Active Substance: HEPARIN SODIUM
     Dosage: 50 ML, QD
     Route: 042
  56. HEPARIN SODIUM [Suspect]
     Active Substance: HEPARIN SODIUM
     Dosage: 250 ML
     Route: 042
  57. HEPARIN SODIUM [Suspect]
     Active Substance: HEPARIN SODIUM
     Dosage: 50 ML
     Route: 042
  58. HEPARIN SODIUM [Suspect]
     Active Substance: HEPARIN SODIUM
     Dosage: 50 ML (SOLUTION INTRAVENOUS)
     Route: 042
  59. HEPARIN SODIUM [Suspect]
     Active Substance: HEPARIN SODIUM
     Dosage: 250 ML
     Route: 042
  60. HEPARIN SODIUM [Suspect]
     Active Substance: HEPARIN SODIUM
     Dosage: 50 ML, QD
     Route: 042
  61. HEPARIN SODIUM [Suspect]
     Active Substance: HEPARIN SODIUM
     Dosage: 50 ML
     Route: 042
  62. HEPARIN SODIUM [Suspect]
     Active Substance: HEPARIN SODIUM
     Dosage: 50 ML
     Route: 042
  63. HEPARIN SODIUM [Suspect]
     Active Substance: HEPARIN SODIUM
     Dosage: 250 ML
     Route: 042
  64. LANSOPRAZOLE [Suspect]
     Active Substance: LANSOPRAZOLE
     Indication: Antacid therapy
     Dosage: 30 MG, QD
     Route: 048
  65. LANSOPRAZOLE [Suspect]
     Active Substance: LANSOPRAZOLE
     Dosage: 30 MG, QD
     Route: 048
  66. LANSOPRAZOLE [Suspect]
     Active Substance: LANSOPRAZOLE
     Dosage: 30 MG, QD
     Route: 048
  67. LANSOPRAZOLE [Suspect]
     Active Substance: LANSOPRAZOLE
     Dosage: 30 MG, QD
     Route: 048
  68. HYDROMORPHONE [Suspect]
     Active Substance: HYDROMORPHONE
     Indication: Analgesic therapy
     Dosage: 1.0 MG, Q4W
     Route: 058
  69. HYDROMORPHONE [Suspect]
     Active Substance: HYDROMORPHONE
     Dosage: 6 MG, Q6H
     Route: 058
  70. HYDROMORPHONE [Suspect]
     Active Substance: HYDROMORPHONE
     Dosage: 6.0 MG, Q4H
     Route: 058
  71. HYDROMORPHONE [Suspect]
     Active Substance: HYDROMORPHONE
     Dosage: 6.0 MG, Q5H
     Route: 058
  72. HYDROMORPHONE [Suspect]
     Active Substance: HYDROMORPHONE
     Dosage: 24.0 MG, Q6H
     Route: 058
  73. HYDROMORPHONE [Suspect]
     Active Substance: HYDROMORPHONE
     Dosage: 6.0 MG, Q4H
     Route: 058
  74. HYDROMORPHONE [Suspect]
     Active Substance: HYDROMORPHONE
     Dosage: 24.0 MG, QD
     Route: 058
  75. HYDROMORPHONE [Suspect]
     Active Substance: HYDROMORPHONE
     Dosage: 1 MG, QD
     Route: 058
  76. HYDROMORPHONE [Suspect]
     Active Substance: HYDROMORPHONE
     Dosage: 36 MG
     Route: 058
  77. ACETAMINOPHEN [Suspect]
     Active Substance: ACETAMINOPHEN
     Indication: Analgesic therapy
     Dosage: 650 MG, QD
     Route: 048
  78. ACETAMINOPHEN [Suspect]
     Active Substance: ACETAMINOPHEN
     Dosage: 650 MG, QD
     Route: 048
  79. BETAMETHASONE [Suspect]
     Active Substance: BETAMETHASONE
     Indication: Swelling
     Dosage: 10 MG
     Route: 061
  80. BETAMETHASONE [Suspect]
     Active Substance: BETAMETHASONE
     Indication: Off label use
     Dosage: 1 MG
     Route: 065
  81. BETAMETHASONE [Suspect]
     Active Substance: BETAMETHASONE
     Dosage: 10 MG
     Route: 061
  82. BETAMETHASONE [Suspect]
     Active Substance: BETAMETHASONE
     Dosage: 1 DOSAGE FORM
     Route: 065
  83. BETAMETHASONE [Suspect]
     Active Substance: BETAMETHASONE
     Dosage: 1 DOSAGE FORM, QD
     Route: 061
  84. BISACODYL [Suspect]
     Active Substance: BISACODYL
     Indication: Ventricular fibrillation
     Dosage: 10 MG
     Route: 065
  85. BISACODYL [Suspect]
     Active Substance: BISACODYL
     Indication: Drug therapy
     Dosage: 10 MG, QD
     Route: 054
  86. BISACODYL [Suspect]
     Active Substance: BISACODYL
     Indication: Constipation
     Dosage: 10 MG, QD
     Route: 054
  87. BISACODYL [Suspect]
     Active Substance: BISACODYL
     Dosage: 10 MG
     Route: 065
  88. BISACODYL [Suspect]
     Active Substance: BISACODYL
     Dosage: 10 MG
     Route: 065
  89. BISACODYL [Suspect]
     Active Substance: BISACODYL
     Dosage: 10 MG
     Route: 065
  90. BISACODYL [Suspect]
     Active Substance: BISACODYL
     Dosage: 10 MG
     Route: 065
  91. BISACODYL [Suspect]
     Active Substance: BISACODYL
     Dosage: 10 MG
     Route: 065
  92. BISACODYL [Suspect]
     Active Substance: BISACODYL
     Dosage: 10 MG, QD
     Route: 054
  93. CALCITRIOL [Suspect]
     Active Substance: CALCITRIOL
     Indication: Vitamin D
     Dosage: 0.25 UG, QD
     Route: 048
  94. CALCITRIOL [Suspect]
     Active Substance: CALCITRIOL
     Indication: Hypovitaminosis
     Dosage: 0.25 UG, QD
     Route: 048
  95. CALCITRIOL [Suspect]
     Active Substance: CALCITRIOL
     Dosage: 0.25 UG, QD
     Route: 048
  96. CALCITRIOL [Suspect]
     Active Substance: CALCITRIOL
     Dosage: 0.25 UG, QD
     Route: 048
  97. CALCITRIOL [Suspect]
     Active Substance: CALCITRIOL
     Dosage: 0.25 UG, QD
     Route: 048
  98. CALCITRIOL [Suspect]
     Active Substance: CALCITRIOL
     Dosage: 0.25 UG, QD
     Route: 048
  99. GABAPENTIN [Suspect]
     Active Substance: GABAPENTIN
     Indication: Neuralgia
     Dosage: UNK
     Route: 065
  100. GABAPENTIN [Suspect]
     Active Substance: GABAPENTIN
     Indication: Bacterial infection
     Dosage: UNK
     Route: 065
  101. GABAPENTIN [Suspect]
     Active Substance: GABAPENTIN
     Dosage: 100 MG, QD
     Route: 048
  102. GABAPENTIN [Suspect]
     Active Substance: GABAPENTIN
     Dosage: 100 MG, QD
     Route: 048
  103. DEXTROSE [Suspect]
     Active Substance: DEXTROSE
     Indication: Nutritional supplementation
     Dosage: 12.5 G, QD
     Route: 042
  104. DEXTROSE [Suspect]
     Active Substance: DEXTROSE
     Dosage: 12.5 MG, QD
     Route: 042
  105. DEXTROSE [Suspect]
     Active Substance: DEXTROSE
     Dosage: 12.5 MG, QD
     Route: 042
  106. DEXTROSE [Suspect]
     Active Substance: DEXTROSE
     Dosage: 12.5 G
     Route: 042
  107. DEXTROSE [Suspect]
     Active Substance: DEXTROSE
     Dosage: 12.5 MG
     Route: 042
  108. DEXTROSE [Suspect]
     Active Substance: DEXTROSE
     Dosage: 12.5 G, QD
     Route: 042
  109. DEXTROSE [Suspect]
     Active Substance: DEXTROSE
     Dosage: 12.5 MG
     Route: 042
  110. DEXTROSE [Suspect]
     Active Substance: DEXTROSE
     Dosage: 12.5 G, QD
     Route: 042
  111. IPRATROPIUM [Suspect]
     Active Substance: IPRATROPIUM
     Indication: Dyspnoea
     Dosage: UNK UNK, QD
     Route: 055
  112. IPRATROPIUM [Suspect]
     Active Substance: IPRATROPIUM
     Dosage: 4 DOSAGE FORM, QD
     Route: 055
  113. IPRATROPIUM [Suspect]
     Active Substance: IPRATROPIUM
     Dosage: 1 DOSAGE FORM, QD
     Route: 055
  114. IPRATROPIUM [Suspect]
     Active Substance: IPRATROPIUM
     Dosage: 3 DOSAGE FORM, QD
     Route: 055
  115. IPRATROPIUM [Suspect]
     Active Substance: IPRATROPIUM
     Dosage: UNK UNK, QD
     Route: 055
  116. IPRATROPIUM [Suspect]
     Active Substance: IPRATROPIUM
     Dosage: UNK UNK, QD
     Route: 055
  117. IPRATROPIUM [Suspect]
     Active Substance: IPRATROPIUM
     Dosage: UNK UNK, QD
     Route: 055
  118. IPRATROPIUM [Suspect]
     Active Substance: IPRATROPIUM
     Dosage: 1 DOSAGE FORM, QD
     Route: 055
  119. IPRATROPIUM [Suspect]
     Active Substance: IPRATROPIUM
     Dosage: 1 DOSAGE FORM, QD
     Route: 055
  120. IPRATROPIUM [Suspect]
     Active Substance: IPRATROPIUM
     Dosage: 1 DOSAGE FORM, QD
     Route: 055
  121. IPRATROPIUM [Suspect]
     Active Substance: IPRATROPIUM
     Dosage: 4 DOSAGE FORM, QD
     Route: 055
  122. IPRATROPIUM [Suspect]
     Active Substance: IPRATROPIUM
     Dosage: UNK
     Route: 055
  123. IPRATROPIUM [Suspect]
     Active Substance: IPRATROPIUM
     Dosage: UNK
     Route: 055
  124. MELATONIN [Suspect]
     Active Substance: MELATONIN
     Indication: Sleep disorder therapy
     Dosage: 3.0 MG, QD
     Route: 048
  125. MELATONIN [Suspect]
     Active Substance: MELATONIN
     Dosage: 3.0 MG, QD
     Route: 048
  126. MELATONIN [Suspect]
     Active Substance: MELATONIN
     Dosage: 3.0 MG, QD
     Route: 048
  127. MELATONIN [Suspect]
     Active Substance: MELATONIN
     Dosage: 3.0 MG, QD
     Route: 048
  128. MELATONIN [Suspect]
     Active Substance: MELATONIN
     Dosage: UNK
     Route: 048
  129. MELATONIN [Suspect]
     Active Substance: MELATONIN
     Dosage: UNK
     Route: 048
  130. METRONIDAZOLE [Suspect]
     Active Substance: METRONIDAZOLE
     Indication: Bacterial infection
     Dosage: 500 MG, Q8H
     Route: 048
  131. METRONIDAZOLE [Suspect]
     Active Substance: METRONIDAZOLE
     Dosage: 500 MG, QD
     Route: 048
  132. METRONIDAZOLE [Suspect]
     Active Substance: METRONIDAZOLE
     Dosage: 1500 MG, QD
     Route: 048
  133. NOREPINEPHRINE [Suspect]
     Active Substance: NOREPINEPHRINE
     Indication: Stress
     Dosage: 1 DOSAGE FORM, QD
     Route: 065
  134. NOREPINEPHRINE [Suspect]
     Active Substance: NOREPINEPHRINE
     Indication: Off label use
     Dosage: 3 MG, QD
     Route: 042
  135. NOREPINEPHRINE [Suspect]
     Active Substance: NOREPINEPHRINE
     Dosage: 3 MG, QD
     Route: 042
  136. NOREPINEPHRINE [Suspect]
     Active Substance: NOREPINEPHRINE
     Dosage: 1 DOSAGE FORM, QD
     Route: 065
  137. ALBUTEROL [Suspect]
     Active Substance: ALBUTEROL
     Indication: Chronic obstructive pulmonary disease
     Dosage: 1 DOSAGE FORM, Q6H
     Route: 055
  138. ALBUTEROL [Suspect]
     Active Substance: ALBUTEROL
     Dosage: 4.0 DOSAGE FORM, QD
     Route: 055
  139. ALBUTEROL [Suspect]
     Active Substance: ALBUTEROL
     Dosage: UNK UNK, Q6H
     Route: 055
  140. ALBUTEROL [Suspect]
     Active Substance: ALBUTEROL
     Dosage: 1 DOSAGE FORM, Q6H
     Route: 055
  141. SIMVASTATIN [Suspect]
     Active Substance: SIMVASTATIN
     Indication: Blood cholesterol increased
     Dosage: UNK
     Route: 065
  142. SIMVASTATIN [Suspect]
     Active Substance: SIMVASTATIN
     Indication: Vitamin supplementation
     Dosage: 40 MG, QD
     Route: 048
  143. SIMVASTATIN [Suspect]
     Active Substance: SIMVASTATIN
     Dosage: UNK
     Route: 065
  144. SIMVASTATIN [Suspect]
     Active Substance: SIMVASTATIN
     Dosage: 40 MG, QD
     Route: 048
  145. SODIUM PHOSPHATE [Suspect]
     Active Substance: SODIUM PHOSPHATE
     Indication: Constipation
     Dosage: 133.0 ML
     Route: 054
  146. SODIUM PHOSPHATE, MONOBASIC [Suspect]
     Active Substance: SODIUM PHOSPHATE, MONOBASIC
     Indication: Constipation
     Dosage: 133.0 ML
     Route: 054
  147. VITAMIN K1 [Suspect]
     Active Substance: PHYTONADIONE
     Indication: Vitamin supplementation
     Dosage: 5.0 MG
     Route: 042
  148. VITAMIN K1 [Suspect]
     Active Substance: PHYTONADIONE
     Dosage: 5.0 MG
     Route: 042
  149. VITAMIN K1 [Suspect]
     Active Substance: PHYTONADIONE
     Dosage: 5 MG, QD
     Route: 042
  150. WARFARIN SODIUM [Suspect]
     Active Substance: WARFARIN SODIUM
     Indication: Thrombosis
     Dosage: 2.0 MG, QD
     Route: 048
  151. WARFARIN SODIUM [Suspect]
     Active Substance: WARFARIN SODIUM
     Dosage: 2 G, QD
     Route: 065
  152. WARFARIN SODIUM [Suspect]
     Active Substance: WARFARIN SODIUM
     Dosage: 2.0 ML, QD
     Route: 048
  153. WARFARIN SODIUM [Suspect]
     Active Substance: WARFARIN SODIUM
     Dosage: 2.0 MG, QD
     Route: 048
  154. WARFARIN SODIUM [Suspect]
     Active Substance: WARFARIN SODIUM
     Dosage: 2.0 ML, QD
     Route: 048
  155. ARANESP [Suspect]
     Active Substance: DARBEPOETIN ALFA
     Indication: Anaemia
     Dosage: 10 MG, Q2W
     Route: 042
  156. ARANESP [Suspect]
     Active Substance: DARBEPOETIN ALFA
     Dosage: 20 MG, QW
     Route: 065
  157. ARANESP [Suspect]
     Active Substance: DARBEPOETIN ALFA
     Dosage: UNK
     Route: 042
  158. ARANESP [Suspect]
     Active Substance: DARBEPOETIN ALFA
     Dosage: UNK
     Route: 065
  159. ARANESP [Suspect]
     Active Substance: DARBEPOETIN ALFA
     Dosage: 0.71 MG, Q2W
     Route: 042
  160. ARANESP [Suspect]
     Active Substance: DARBEPOETIN ALFA
     Dosage: 10 UG
     Route: 042
  161. ARANESP [Suspect]
     Active Substance: DARBEPOETIN ALFA
     Dosage: 10 UG
     Route: 042
  162. ARANESP [Suspect]
     Active Substance: DARBEPOETIN ALFA
     Dosage: 0.71 UG, QD
     Route: 042
  163. ARANESP [Suspect]
     Active Substance: DARBEPOETIN ALFA
     Dosage: 0.71 UG, Q2W
     Route: 042
  164. ARANESP [Suspect]
     Active Substance: DARBEPOETIN ALFA
     Dosage: 0.2 UG, QW
     Route: 042
  165. ARANESP [Suspect]
     Active Substance: DARBEPOETIN ALFA
     Dosage: 1.42 UG, QW
     Route: 017
  166. ATROVENT [Suspect]
     Active Substance: IPRATROPIUM BROMIDE
     Indication: Sleep disorder therapy
     Dosage: 1 DOSAGE FORM, QH
     Route: 050
  167. ATROVENT [Suspect]
     Active Substance: IPRATROPIUM BROMIDE
     Indication: Dyspnoea
     Dosage: 1 DOSAGE FORM
     Route: 050
  168. ATROVENT [Suspect]
     Active Substance: IPRATROPIUM BROMIDE
     Dosage: 1 DOSAGE FORM, QH
     Route: 050
  169. ATROVENT [Suspect]
     Active Substance: IPRATROPIUM BROMIDE
     Dosage: UNK
     Route: 050
  170. ATROVENT [Suspect]
     Active Substance: IPRATROPIUM BROMIDE
     Dosage: 1 DOSAGE FORM
     Route: 050
  171. ATROVENT [Suspect]
     Active Substance: IPRATROPIUM BROMIDE
     Dosage: 1 DOSAGE FORM, Q6H
     Route: 050
  172. ATROVENT [Suspect]
     Active Substance: IPRATROPIUM BROMIDE
     Dosage: 1 DOSAGE FORM, Q6H
     Route: 050
  173. ATROVENT [Suspect]
     Active Substance: IPRATROPIUM BROMIDE
     Dosage: 1 DOSAGE FORM, Q8H
     Route: 050
  174. ATROVENT [Suspect]
     Active Substance: IPRATROPIUM BROMIDE
     Dosage: UNK
     Route: 050
  175. ATROVENT [Suspect]
     Active Substance: IPRATROPIUM BROMIDE
     Dosage: 1 DOSAGE FORM, Q8H
     Route: 050
  176. CHLORAMPHENICOL\HYDROCORTISONE ACETATE\METRONIDAZOLE\NYSTATIN [Suspect]
     Active Substance: CHLORAMPHENICOL\HYDROCORTISONE ACETATE\METRONIDAZOLE\NYSTATIN
     Indication: Anaemia
     Dosage: 500 MG, Q8H
     Route: 065
  177. CHLORAMPHENICOL\HYDROCORTISONE ACETATE\METRONIDAZOLE\NYSTATIN [Suspect]
     Active Substance: CHLORAMPHENICOL\HYDROCORTISONE ACETATE\METRONIDAZOLE\NYSTATIN
     Indication: Bacterial infection
  178. DALTEPARIN SODIUM [Suspect]
     Active Substance: DALTEPARIN SODIUM
     Indication: Pulmonary embolism
     Dosage: 2.5 ML
     Route: 065
  179. DALTEPARIN SODIUM [Suspect]
     Active Substance: DALTEPARIN SODIUM
     Indication: Thrombosis
     Dosage: 2.5 ML
     Route: 065
  180. DALTEPARIN SODIUM [Suspect]
     Active Substance: DALTEPARIN SODIUM
     Dosage: UNK
     Route: 048
  181. DALTEPARIN SODIUM [Suspect]
     Active Substance: DALTEPARIN SODIUM
     Dosage: UNK
     Route: 048
  182. DALTEPARIN SODIUM [Suspect]
     Active Substance: DALTEPARIN SODIUM
     Dosage: UNK
     Route: 048
  183. DALTEPARIN SODIUM [Suspect]
     Active Substance: DALTEPARIN SODIUM
     Dosage: 2.5 ML
     Route: 065
  184. DEXTROSE [Suspect]
     Active Substance: DEXTROSE
     Indication: Nutritional supplementation
     Dosage: 12.5 MG
     Route: 042
  185. DIPYRONE [Suspect]
     Active Substance: DIPYRONE
     Indication: Vitamin supplementation
     Dosage: 5 MG
     Route: 042
  186. DIPYRONE [Suspect]
     Active Substance: DIPYRONE
     Dosage: 5 UNK
     Route: 065
  187. DISTIGMINE BROMIDE [Suspect]
     Active Substance: DISTIGMINE BROMIDE
     Indication: Dyspnoea
     Dosage: 1 IU INTERNATIONAL UNIT(S), QD
     Route: 048
  188. DISTIGMINE BROMIDE [Suspect]
     Active Substance: DISTIGMINE BROMIDE
     Dosage: 1 IU INTERNATIONAL UNIT(S), QD
     Route: 048
  189. DISTIGMINE BROMIDE [Suspect]
     Active Substance: DISTIGMINE BROMIDE
     Dosage: 1 IU INTERNATIONAL UNIT(S), QD
     Route: 048
  190. DISTIGMINE BROMIDE [Suspect]
     Active Substance: DISTIGMINE BROMIDE
     Dosage: 1 IU INTERNATIONAL UNIT(S), QD
     Route: 048
  191. DULCOLAX NOS [Suspect]
     Active Substance: BISACODYL OR DOCUSATE SODIUM
     Indication: Constipation
     Dosage: 10 MG, QD
     Route: 054
  192. DULCOLAX NOS [Suspect]
     Active Substance: BISACODYL OR DOCUSATE SODIUM
     Indication: Ventricular fibrillation
     Dosage: 10 MG
     Route: 054
  193. DULCOLAX NOS [Suspect]
     Active Substance: BISACODYL OR DOCUSATE SODIUM
     Indication: Drug therapy
     Dosage: 10 MG
     Route: 054
  194. DULCOLAX NOS [Suspect]
     Active Substance: BISACODYL OR DOCUSATE SODIUM
     Dosage: 10 MG
     Route: 054
  195. DULCOLAX NOS [Suspect]
     Active Substance: BISACODYL OR DOCUSATE SODIUM
     Dosage: 10 MG, QD
     Route: 054
  196. DULCOLAX NOS [Suspect]
     Active Substance: BISACODYL OR DOCUSATE SODIUM
     Dosage: 10 MG, QD
     Route: 054
  197. FLUTICASONE FUROATE [Suspect]
     Active Substance: FLUTICASONE FUROATE
     Indication: Nutritional supplementation
     Dosage: UNK
     Route: 048
  198. FLUTICASONE FUROATE [Suspect]
     Active Substance: FLUTICASONE FUROATE
     Indication: Dyspnoea
     Dosage: UNK
     Route: 048
  199. FLUTICASONE FUROATE [Suspect]
     Active Substance: FLUTICASONE FUROATE
     Indication: Blood phosphorus increased
     Dosage: UNK
     Route: 048
  200. FLUTICASONE FUROATE [Suspect]
     Active Substance: FLUTICASONE FUROATE
     Indication: Intentional product misuse
     Dosage: UNK
     Route: 048
  201. FLUTICASONE FUROATE [Suspect]
     Active Substance: FLUTICASONE FUROATE
     Dosage: UNK
     Route: 048
  202. FLUTICASONE FUROATE [Suspect]
     Active Substance: FLUTICASONE FUROATE
     Dosage: UNK
     Route: 048
  203. FLUTICASONE FUROATE [Suspect]
     Active Substance: FLUTICASONE FUROATE
     Dosage: UNK
     Route: 048
  204. FLUTICASONE FUROATE [Suspect]
     Active Substance: FLUTICASONE FUROATE
     Dosage: UNK
     Route: 048
  205. FLUTICASONE FUROATE [Suspect]
     Active Substance: FLUTICASONE FUROATE
     Dosage: UNK
     Route: 048
  206. FLUTICASONE FUROATE [Suspect]
     Active Substance: FLUTICASONE FUROATE
     Dosage: UNK
     Route: 048
  207. FLUTICASONE FUROATE [Suspect]
     Active Substance: FLUTICASONE FUROATE
     Dosage: 1 IU
     Route: 048
  208. FLUTICASONE FUROATE [Suspect]
     Active Substance: FLUTICASONE FUROATE
     Dosage: UNK
     Route: 048
  209. FLUTICASONE FUROATE [Suspect]
     Active Substance: FLUTICASONE FUROATE
     Dosage: 1 IU
     Route: 065
  210. FLUTICASONE FUROATE [Suspect]
     Active Substance: FLUTICASONE FUROATE
     Dosage: 1 IU
     Route: 065
  211. INSULIN ASPART [Suspect]
     Active Substance: INSULIN ASPART
     Indication: Diabetes mellitus
     Dosage: UNK
     Route: 058
  212. INSULIN ASPART [Suspect]
     Active Substance: INSULIN ASPART
     Dosage: UNK
     Route: 048
  213. INSULIN ASPART [Suspect]
     Active Substance: INSULIN ASPART
     Dosage: UNK
     Route: 065
  214. INSULIN DEGLUDEC [Suspect]
     Active Substance: INSULIN DEGLUDEC
     Indication: Diabetes mellitus
     Dosage: UNK
     Route: 058
  215. INSULIN DEGLUDEC [Suspect]
     Active Substance: INSULIN DEGLUDEC
     Dosage: 1 DOSAGE FORM, QD
     Route: 058
  216. INSULIN DEGLUDEC [Suspect]
     Active Substance: INSULIN DEGLUDEC
     Dosage: 1 DOSAGE FORM, QD
     Route: 065
  217. LANTHANUM CARBONATE [Suspect]
     Active Substance: LANTHANUM CARBONATE
     Indication: Blood phosphorus increased
     Dosage: 500 MG
     Route: 048
  218. LANTHANUM CARBONATE [Suspect]
     Active Substance: LANTHANUM CARBONATE
     Dosage: 500 MG, QD
     Route: 048
  219. LANTHANUM CARBONATE [Suspect]
     Active Substance: LANTHANUM CARBONATE
     Dosage: 500 MG
     Route: 048
  220. LANTHANUM CARBONATE [Suspect]
     Active Substance: LANTHANUM CARBONATE
     Dosage: 500 MG
     Route: 048
  221. LANTHANUM CARBONATE [Suspect]
     Active Substance: LANTHANUM CARBONATE
     Dosage: 500 MG, QD
     Route: 048
  222. LANTHANUM CARBONATE [Suspect]
     Active Substance: LANTHANUM CARBONATE
     Dosage: 500 MG
     Route: 048
  223. LANTHANUM CARBONATE [Suspect]
     Active Substance: LANTHANUM CARBONATE
     Dosage: 500 MG
     Route: 048
  224. LANTHANUM CARBONATE [Suspect]
     Active Substance: LANTHANUM CARBONATE
     Dosage: 500 MG
     Route: 048
  225. POLYETHYLENE GLYCOLS [Suspect]
     Active Substance: POLYETHYLENE GLYCOLS
     Indication: Constipation
     Dosage: UNK, QD
     Route: 048
  226. POLYETHYLENE GLYCOLS [Suspect]
     Active Substance: POLYETHYLENE GLYCOLS
     Dosage: 17.0 MG, QD
     Route: 048
  227. POLYETHYLENE GLYCOLS [Suspect]
     Active Substance: POLYETHYLENE GLYCOLS
     Dosage: 17.0 G
     Route: 048
  228. POLYETHYLENE GLYCOL 3350 [Suspect]
     Active Substance: POLYETHYLENE GLYCOL 3350
     Indication: Constipation
     Dosage: 17.0 MG, QD(POWDER FOR ORAL SOLUTION)
     Route: 048
  229. POLYETHYLENE GLYCOL 3350 [Suspect]
     Active Substance: POLYETHYLENE GLYCOL 3350
     Dosage: 17.0 G, QD
     Route: 048
  230. POLYETHYLENE GLYCOL 3350 [Suspect]
     Active Substance: POLYETHYLENE GLYCOL 3350
     Dosage: 17.0 G, QD
     Route: 048
  231. OSELTAMIVIR PHOSPHATE [Suspect]
     Active Substance: OSELTAMIVIR PHOSPHATE
     Indication: Product used for unknown indication
     Dosage: 133.0 ML
     Route: 054
  232. HERBALS\PAULLINIA CUPANA SEED [Suspect]
     Active Substance: HERBALS\PAULLINIA CUPANA SEED
     Indication: Nutritional supplementation
     Dosage: 12.5 MG
     Route: 042
  233. HERBALS\PAULLINIA CUPANA SEED [Suspect]
     Active Substance: HERBALS\PAULLINIA CUPANA SEED
     Dosage: 12.5 MG
     Route: 042
  234. POLYETHYLENE GLYCOL 4000 [Suspect]
     Active Substance: POLYETHYLENE GLYCOL 4000
     Indication: Constipation
     Dosage: 17 MG
     Route: 048
  235. PYRIDOXINE HYDROCHLORIDE [Suspect]
     Active Substance: PYRIDOXINE HYDROCHLORIDE
     Indication: Vitamin supplementation
     Dosage: 4.0 IU INTERNATIONAL UNIT(S), QD
     Route: 048
  236. PYRIDOXINE HYDROCHLORIDE [Suspect]
     Active Substance: PYRIDOXINE HYDROCHLORIDE
     Indication: Constipation
     Dosage: 10 IU INTERNATIONAL UNIT(S), QD
     Route: 048
  237. PYRIDOXINE HYDROCHLORIDE [Suspect]
     Active Substance: PYRIDOXINE HYDROCHLORIDE
     Indication: Analgesic therapy
     Dosage: 10 MG
     Route: 048
  238. PYRIDOXINE HYDROCHLORIDE [Suspect]
     Active Substance: PYRIDOXINE HYDROCHLORIDE
     Dosage: 10 MG
     Route: 048
  239. PYRIDOXINE HYDROCHLORIDE [Suspect]
     Active Substance: PYRIDOXINE HYDROCHLORIDE
     Dosage: 10 MG
     Route: 048
  240. PYRIDOXINE HYDROCHLORIDE [Suspect]
     Active Substance: PYRIDOXINE HYDROCHLORIDE
     Dosage: 10 MG
     Route: 048
  241. PYRIDOXINE HYDROCHLORIDE [Suspect]
     Active Substance: PYRIDOXINE HYDROCHLORIDE
     Dosage: 10 MG
     Route: 048
  242. PYRIDOXINE HYDROCHLORIDE [Suspect]
     Active Substance: PYRIDOXINE HYDROCHLORIDE
     Dosage: 10 MG
     Route: 048
  243. PYRIDOXINE HYDROCHLORIDE [Suspect]
     Active Substance: PYRIDOXINE HYDROCHLORIDE
     Dosage: 4.0 IU (INTERNATIONAL UNIT), QD
     Route: 048
  244. PYRIDOXINE HYDROCHLORIDE [Suspect]
     Active Substance: PYRIDOXINE HYDROCHLORIDE
     Dosage: 4.0 IU (INTERNATIONAL UNIT), QD
     Route: 048
  245. PYRIDOXINE HYDROCHLORIDE [Suspect]
     Active Substance: PYRIDOXINE HYDROCHLORIDE
     Dosage: 4.0 IU (INTERNATIONAL UNIT), QD
     Route: 048
  246. PYRIDOXINE HYDROCHLORIDE [Suspect]
     Active Substance: PYRIDOXINE HYDROCHLORIDE
     Dosage: 4.0 IU (INTERNATIONAL UNIT), QD
     Route: 048
  247. PYRIDOXINE HYDROCHLORIDE [Suspect]
     Active Substance: PYRIDOXINE HYDROCHLORIDE
     Dosage: UNK, QD
     Route: 048
  248. SODIUM CITRATE [Suspect]
     Active Substance: SODIUM CITRATE
     Indication: Thrombosis
     Dosage: 2.5 ML
     Route: 065
  249. SODIUM CITRATE [Suspect]
     Active Substance: SODIUM CITRATE
     Dosage: 2.5 ML
     Route: 065
  250. SODIUM CITRATE [Suspect]
     Active Substance: SODIUM CITRATE
     Dosage: 2.5 ML, QD
     Route: 065
  251. SODIUM CITRATE [Suspect]
     Active Substance: SODIUM CITRATE
     Dosage: 2.5 ML, QD
     Route: 065
  252. SODIUM CITRATE [Suspect]
     Active Substance: SODIUM CITRATE
     Dosage: 2.5 ML, QD
     Route: 065
  253. SODIUM CITRATE [Suspect]
     Active Substance: SODIUM CITRATE
     Dosage: 2.5 ML, QD
     Route: 065
  254. SODIUM CITRATE [Suspect]
     Active Substance: SODIUM CITRATE
     Dosage: 2.5 ML
     Route: 065
  255. SODIUM FERRIC GLUCONATE COMPLEX [Suspect]
     Active Substance: SODIUM FERRIC GLUCONATE COMPLEX
     Indication: Iron deficiency
     Dosage: 125 MG, Q4W
     Route: 042
  256. SODIUM FERRIC GLUCONATE COMPLEX [Suspect]
     Active Substance: SODIUM FERRIC GLUCONATE COMPLEX
     Dosage: 4.64 MG, Q4W
     Route: 042
  257. SODIUM FERRIC GLUCONATE COMPLEX [Suspect]
     Active Substance: SODIUM FERRIC GLUCONATE COMPLEX
     Dosage: 125 MG, QMO
     Route: 042
  258. SODIUM FERRIC GLUCONATE COMPLEX [Suspect]
     Active Substance: SODIUM FERRIC GLUCONATE COMPLEX
     Dosage: 125 MG, QMO
     Route: 042
  259. SODIUM FERRIC GLUCONATE COMPLEX [Suspect]
     Active Substance: SODIUM FERRIC GLUCONATE COMPLEX
     Dosage: 4.64 MG, QMO
     Route: 042
  260. SODIUM FERRIC GLUCONATE COMPLEX [Suspect]
     Active Substance: SODIUM FERRIC GLUCONATE COMPLEX
     Dosage: 125 MG, QW
     Route: 042
  261. SODIUM FERRIC GLUCONATE COMPLEX [Suspect]
     Active Substance: SODIUM FERRIC GLUCONATE COMPLEX
     Dosage: 1.25 MG, QW
     Route: 042
  262. SODIUM FERRIC GLUCONATE COMPLEX [Suspect]
     Active Substance: SODIUM FERRIC GLUCONATE COMPLEX
     Dosage: 4.64 MG, Q4W
     Route: 042
  263. SODIUM PICOSULFATE [Suspect]
     Active Substance: SODIUM PICOSULFATE
     Indication: Constipation
     Dosage: 10 MG
     Route: 054
  264. SODIUM PICOSULFATE [Suspect]
     Active Substance: SODIUM PICOSULFATE
     Dosage: 10 MG
     Route: 054
  265. SODIUM PICOSULFATE [Suspect]
     Active Substance: SODIUM PICOSULFATE
     Dosage: 125 MG, QMO
     Route: 054
  266. SODIUM PICOSULFATE [Suspect]
     Active Substance: SODIUM PICOSULFATE
     Dosage: 10 MG
     Route: 054
  267. SODIUM PICOSULFATE [Suspect]
     Active Substance: SODIUM PICOSULFATE
     Dosage: UNK
     Route: 065
  268. SODIUM PICOSULFATE [Suspect]
     Active Substance: SODIUM PICOSULFATE
     Dosage: UNK
     Route: 065
  269. SODIUM PICOSULFATE [Suspect]
     Active Substance: SODIUM PICOSULFATE
     Dosage: 125 MG, QMO
     Route: 054
  270. SODIUM PICOSULFATE [Suspect]
     Active Substance: SODIUM PICOSULFATE
     Dosage: 10 MG
     Route: 054
  271. SODIUM PICOSULFATE [Suspect]
     Active Substance: SODIUM PICOSULFATE
     Dosage: 10 MG
     Route: 054
  272. SODIUM PICOSULFATE [Suspect]
     Active Substance: SODIUM PICOSULFATE
     Dosage: 10 MG
     Route: 054
  273. UMECLIDINIUM BROMIDE [Suspect]
     Active Substance: UMECLIDINIUM BROMIDE
     Indication: Dyspnoea
     Dosage: 1.0 IU INTERNATIONAL UNIT(S), QD
     Route: 048
  274. UMECLIDINIUM BROMIDE [Suspect]
     Active Substance: UMECLIDINIUM BROMIDE
     Dosage: 1.0 IU INTERNATIONAL UNIT(S), QD
     Route: 048
  275. MALTOSE [Suspect]
     Active Substance: MALTOSE
     Indication: Nutritional supplementation
     Dosage: 12.5 G
     Route: 065
  276. MALTOSE [Suspect]
     Active Substance: MALTOSE
     Dosage: UNK
     Route: 065
  277. VILANTEROL TRIFENATATE [Suspect]
     Active Substance: VILANTEROL TRIFENATATE
     Indication: Dyspnoea
     Dosage: 0.1 UNK, QD (IU, INTERNATIONAL UNITS)
     Route: 065
  278. VILANTEROL TRIFENATATE [Suspect]
     Active Substance: VILANTEROL TRIFENATATE
     Dosage: 0.1 IU INTERNATIONAL UNITS, QD
     Route: 048
  279. VILANTEROL TRIFENATATE [Suspect]
     Active Substance: VILANTEROL TRIFENATATE
     Dosage: UNK
     Route: 065
  280. XANTOFYL PALMITATE [Suspect]
     Active Substance: XANTOFYL PALMITATE
     Indication: Nutritional supplementation
     Dosage: 12.5 G
     Route: 042
  281. XANTOFYL PALMITATE [Suspect]
     Active Substance: XANTOFYL PALMITATE
     Dosage: 12.5 G
     Route: 042
  282. PREVACID [Suspect]
     Active Substance: LANSOPRAZOLE
     Indication: Antacid therapy
     Dosage: 30 MG, QD
     Route: 065
  283. ASIAN GINSENG [Suspect]
     Active Substance: ASIAN GINSENG
     Indication: Nutritional supplementation
     Dosage: 12.5 MG
     Route: 065
  284. IPRATROPIUM BROMIDE [Suspect]
     Active Substance: IPRATROPIUM BROMIDE
     Indication: Dyspnoea
     Dosage: UNK, QD
     Route: 055
  285. IPRATROPIUM BROMIDE [Suspect]
     Active Substance: IPRATROPIUM BROMIDE
     Dosage: 1.0 DOSAGE FORM, Q6H
     Route: 055
  286. IPRATROPIUM BROMIDE [Suspect]
     Active Substance: IPRATROPIUM BROMIDE
     Dosage: 1 DOSAGE FORM, QD
     Route: 055
  287. IPRATROPIUM BROMIDE [Suspect]
     Active Substance: IPRATROPIUM BROMIDE
     Dosage: UNK, QD
     Route: 055
  288. IPRATROPIUM BROMIDE [Suspect]
     Active Substance: IPRATROPIUM BROMIDE
     Dosage: 1 DOSAGE FORM, QD
     Route: 055
  289. UNSPECIFIED INGREDIENT [Suspect]
     Active Substance: UNSPECIFIED INGREDIENT
     Indication: Anticoagulant therapy
     Dosage: 250 ML, QD
     Route: 065
  290. UNSPECIFIED INGREDIENT [Suspect]
     Active Substance: UNSPECIFIED INGREDIENT
     Dosage: 50 ML, QD
     Route: 065
  291. FENOTEROL [Suspect]
     Active Substance: FENOTEROL
     Indication: Dyspnoea
     Dosage: UNK, QD
     Route: 065
  292. FENOTEROL [Suspect]
     Active Substance: FENOTEROL
     Dosage: 1.0 DOSAGE FORM
     Route: 065
  293. FENOTEROL [Suspect]
     Active Substance: FENOTEROL
     Dosage: 3 DOSAGE FORM, QD
     Route: 065
  294. FENOTEROL [Suspect]
     Active Substance: FENOTEROL
     Dosage: 3 DOSAGE FORM, Q8H
     Route: 065
  295. ALUMINUM HYDROXIDE [Suspect]
     Active Substance: ALUMINUM HYDROXIDE
     Indication: Constipation
     Dosage: 133 ML
     Route: 054
  296. MAGNESIUM HYDROXIDE [Suspect]
     Active Substance: MAGNESIUM HYDROXIDE
     Indication: Constipation
     Dosage: 133 ML
     Route: 054
  297. BISMUTH [Suspect]
     Active Substance: BISMUTH
     Indication: Constipation
     Dosage: 133.0 ML
     Route: 065
  298. FURAZOLIDONE [Suspect]
     Active Substance: FURAZOLIDONE
     Indication: Product used for unknown indication
     Dosage: UNK
     Route: 042
  299. AMINOBENZOIC ACID [Suspect]
     Active Substance: AMINOBENZOIC ACID
     Indication: Product used for unknown indication
     Dosage: UNK
     Route: 065
  300. BUFEXAMAC [Suspect]
     Active Substance: BUFEXAMAC
     Indication: Constipation
     Dosage: 133 ML
     Route: 054
  301. CALCIUM CHLORIDE [Suspect]
     Active Substance: CALCIUM CHLORIDE
     Indication: Nutritional supplementation
     Dosage: UNK
     Route: 065
  302. CARBOHYDRATES [Suspect]
     Active Substance: CARBOHYDRATES
     Indication: Vitamin supplementation
     Dosage: 5 MG
     Route: 065
  303. CARBOHYDRATES [Suspect]
     Active Substance: CARBOHYDRATES
     Indication: Vitamin D
     Dosage: 5 MG, QD
     Route: 042
  304. CARBOHYDRATES [Suspect]
     Active Substance: CARBOHYDRATES
     Dosage: 5 MG, QD
     Route: 042
  305. CARBOHYDRATES [Suspect]
     Active Substance: CARBOHYDRATES
     Dosage: 5 UNK
     Route: 042
  306. SODIUM CHLORIDE [Suspect]
     Active Substance: SODIUM CHLORIDE
     Indication: Nutritional supplementation
     Dosage: UNK
     Route: 042
  307. HEPARIN CALCIUM [Suspect]
     Active Substance: HEPARIN CALCIUM
     Indication: Anticoagulant therapy
     Dosage: 50 ML
     Route: 065
  308. MANNITOL [Suspect]
     Active Substance: MANNITOL
     Indication: Nutritional supplementation
     Dosage: 12.5 G
     Route: 042
  309. TRESIBA [Suspect]
     Active Substance: INSULIN DEGLUDEC
     Indication: Diabetes mellitus
     Dosage: 1 DOSAGE FORM, QD
     Route: 058
  310. VITAMIN E [Suspect]
     Active Substance: .ALPHA.-TOCOPHEROL
     Indication: Nutritional supplementation
     Dosage: 12.5 G
     Route: 042
  311. DISODIUM HYDROGEN CITRATE [Concomitant]
     Active Substance: DISODIUM HYDROGEN CITRATE
     Indication: Thrombosis
     Dosage: 2.5 ML
     Route: 065
  312. DISODIUM HYDROGEN CITRATE [Concomitant]
     Active Substance: DISODIUM HYDROGEN CITRATE
     Dosage: 2.5 ML
     Route: 065
  313. BETA CAROTENE [Concomitant]
     Active Substance: BETA CAROTENE
     Indication: Product used for unknown indication
     Dosage: UNK
     Route: 065
  314. RIBOFLAVIN 5^-PHOSPHATE SODIUM [Concomitant]
     Active Substance: RIBOFLAVIN 5^-PHOSPHATE SODIUM
     Indication: Product used for unknown indication
     Dosage: UNK
     Route: 048
  315. RIBOFLAVIN 5^-PHOSPHATE SODIUM [Concomitant]
     Active Substance: RIBOFLAVIN 5^-PHOSPHATE SODIUM
     Dosage: 17 G, QD
     Route: 048
  316. MAGNESIUM CARBONATE\SODIUM BICARBONATE [Suspect]
     Active Substance: MAGNESIUM CARBONATE\SODIUM BICARBONATE

REACTIONS (17)
  - Abdominal distension [Fatal]
  - Abdominal pain [Fatal]
  - Appendicitis [Fatal]
  - Appendicolith [Fatal]
  - Ascites [Fatal]
  - Cardiogenic shock [Fatal]
  - Constipation [Fatal]
  - General physical health deterioration [Fatal]
  - Hyponatraemia [Fatal]
  - Multiple organ dysfunction syndrome [Fatal]
  - Nausea [Fatal]
  - Sepsis [Fatal]
  - Ventricular fibrillation [Fatal]
  - Stress [Fatal]
  - Vomiting [Fatal]
  - Blood phosphorus increased [Fatal]
  - Off label use [Fatal]
